FAERS Safety Report 10219414 (Version 1)
Quarter: 2014Q2

REPORT INFORMATION
  Report Type: Spontaneous
  Country: US (occurrence: US)
  Receive Date: 20140605
  Receipt Date: 20140605
  Transmission Date: 20141212
  Serious: Yes (Other)
  Sender: FDA-Public Use
  Company Number: CHPA2014US007432

PATIENT
  Age: 66 Year
  Sex: Female

DRUGS (2)
  1. VOLTAREN GEL [Suspect]
     Indication: OSTEOARTHRITIS
     Dosage: 2 G, QID
     Route: 061
     Dates: end: 20140529
  2. PREDNISONE [Concomitant]
     Dosage: UNK
     Dates: end: 20140525

REACTIONS (4)
  - Rash erythematous [Not Recovered/Not Resolved]
  - Pain [Recovering/Resolving]
  - Burning sensation [Recovering/Resolving]
  - Hypersensitivity [Unknown]
